FAERS Safety Report 6883330-3 (Version None)
Quarter: 2010Q3

REPORT INFORMATION
  Report Type: 
  Country: None (occurrence: None)
  Receive Date: 20100727
  Receipt Date: 20071024
  Transmission Date: 20110219
  Serious: Yes (Hospitalization)
  Sender: FDA-Public Use
  Company Number: US-PFIZER INC-2006118916

PATIENT
  Sex: Male
  Weight: 93 kg

DRUGS (4)
  1. CELEBREX [Suspect]
     Indication: PAIN
     Dates: start: 20020101
  2. VIOXX [Suspect]
     Indication: ARTHRITIS
     Dates: start: 20020201
  3. VIOXX [Suspect]
     Indication: PAIN
  4. LOPRESSOR [Concomitant]
     Indication: TACHYCARDIA

REACTIONS (1)
  - CEREBROVASCULAR ACCIDENT [None]
